FAERS Safety Report 9927501 (Version 2)
Quarter: 2014Q1

REPORT INFORMATION
  Report Type: Spontaneous
  Country: JP (occurrence: JP)
  Receive Date: 20140227
  Receipt Date: 20140315
  Transmission Date: 20141002
  Serious: Yes (Other)
  Sender: FDA-Public Use
  Company Number: JP-ROCHE-1354590

PATIENT
  Age: 6 Year
  Sex: Male
  Weight: 21 kg

DRUGS (6)
  1. TAMIFLU [Suspect]
     Indication: INFLUENZA
     Route: 048
     Dates: start: 20140215, end: 20140215
  2. KLARICID [Concomitant]
     Indication: INFLUENZA
     Route: 048
     Dates: start: 20140214
  3. ASVERIN [Concomitant]
     Indication: INFLUENZA
     Route: 048
     Dates: start: 20140214
  4. MUCODYNE [Concomitant]
     Indication: INFLUENZA
     Route: 048
     Dates: start: 20140214
  5. POLARAMINE [Concomitant]
     Indication: INFLUENZA
     Route: 048
     Dates: start: 20140214
  6. LAC B-R [Concomitant]
     Indication: INFLUENZA
     Route: 048
     Dates: start: 20140214

REACTIONS (1)
  - Abnormal behaviour [Recovered/Resolved]
